FAERS Safety Report 15256922 (Version 1)
Quarter: 2018Q3

REPORT INFORMATION
  Report Type: Not Available
  Country: JP (occurrence: ZA)
  Receive Date: 20180808
  Receipt Date: 20180808
  Transmission Date: 20181010
  Serious: Yes (Death)
  Sender: FDA-Public Use
  Company Number: ZA-JACOBUS PHARMACEUTICAL COMPANY, INC.-2053469

PATIENT
  Age: 39 Year
  Sex: Female

DRUGS (7)
  1. PYRAZINAMIDE. [Suspect]
     Active Substance: PYRAZINAMIDE
  2. BEDAQUILINE? [Suspect]
     Active Substance: BEDAQUILINE
  3. TERIZIDONE [Suspect]
     Active Substance: TERIZIDONE
  4. PASER [Suspect]
     Active Substance: AMINOSALICYLIC ACID
     Indication: TUBERCULOSIS
     Route: 048
     Dates: start: 20180502, end: 20180702
  5. DELAMANID 100 MG TWICE DAILY ORAL [Suspect]
     Active Substance: DELAMANID
     Dates: start: 20180621, end: 20180702
  6. LINEZOLID. [Suspect]
     Active Substance: LINEZOLID
  7. CLOFAZIMINE [Suspect]
     Active Substance: CLOFAZIMINE

REACTIONS (7)
  - Renal impairment [Fatal]
  - Acidosis [Fatal]
  - Herbal toxicity [None]
  - Hypoglycaemia [Fatal]
  - Dyspnoea [Fatal]
  - Poisoning [Fatal]
  - Gastritis [Fatal]
